FAERS Safety Report 23086010 (Version 5)
Quarter: 2025Q2

REPORT INFORMATION
  Report Type: Spontaneous
  Country: IN (occurrence: IN)
  Receive Date: 20231019
  Receipt Date: 20250422
  Transmission Date: 20250716
  Serious: Yes (Other)
  Sender: PFIZER
  Company Number: IN-PFIZER INC-202200455662

PATIENT
  Age: 65 Year
  Sex: Female

DRUGS (13)
  1. PALBOCICLIB [Suspect]
     Active Substance: PALBOCICLIB
     Indication: Breast cancer metastatic
     Route: 048
     Dates: start: 20211220
  2. PALBOCICLIB [Suspect]
     Active Substance: PALBOCICLIB
     Dosage: 100 MG, 1X/DAY
     Route: 048
  3. PALBOCICLIB [Suspect]
     Active Substance: PALBOCICLIB
  4. LETROZOLE [Concomitant]
     Active Substance: LETROZOLE
     Dosage: 2.5 MG, 1X/DAY(1 MONTH, AFTER BREAKFAST)
  5. CALCIMAX 500 [Concomitant]
     Dosage: 500 MG, 1X/DAY(1 MONTH, AFTER LUNCH)
  6. CALCIMAX 500 [Concomitant]
     Dosage: 500 MG, 1X/DAY(4 MONTH, AFTER FOOD 1-0-0)
  7. VENUSIA MAX [Concomitant]
     Dosage: UNK, 3X/DAY(2 WEEKS)
  8. VENUSIA MAX [Concomitant]
  9. NEXITO [Concomitant]
     Dosage: 5 MG, 1X/DAY (3 WEEKS, AFTER DINNER)
  10. ANASTROZOLE [Concomitant]
     Active Substance: ANASTROZOLE
     Dosage: 1 MG, 1X/DAY, AFTER FOOD 1-0-0(4 MONTHLY)
  11. FOLVITE [Concomitant]
     Active Substance: FOLIC ACID
     Dosage: UNK, 1X/DAY(1-0-0, AFTER FOOD, 4 MONTHS)
  12. THREPTIN [Concomitant]
     Dosage: UNK, 2X/DAY(1-0-1 AFTER FOOD, 4 MONTHS)
  13. MAHAGABA M [Concomitant]
     Dosage: UNK, 1X/DAY (0-0-1, AFTER FOOD, 4 MONTHS)

REACTIONS (7)
  - Neutropenia [Unknown]
  - Thrombocytopenia [Unknown]
  - Cytopenia [Unknown]
  - Off label use [Unknown]
  - Haemoglobin decreased [Unknown]
  - White blood cell count decreased [Unknown]
  - Platelet count decreased [Unknown]

NARRATIVE: CASE EVENT DATE: 20211220
